FAERS Safety Report 15546418 (Version 1)
Quarter: 2018Q4

REPORT INFORMATION
  Report Type: Spontaneous
  Country: US (occurrence: US)
  Receive Date: 20181023
  Receipt Date: 20181023
  Transmission Date: 20190205
  Serious: Yes (Hospitalization)
  Sender: FDA-Public Use
  Company Number: None

PATIENT
  Age: 65 Year
  Sex: Female

DRUGS (12)
  1. PREDNISONE. [Concomitant]
     Active Substance: PREDNISONE
  2. LVEOTHYROXIN [Concomitant]
  3. MELOXICAM. [Concomitant]
     Active Substance: MELOXICAM
  4. MONTELUKAST [Concomitant]
     Active Substance: MONTELUKAST SODIUM
  5. GABAPENTIN. [Concomitant]
     Active Substance: GABAPENTIN
  6. HYDROXYCHLOR [Concomitant]
     Active Substance: HYDROXYCHLOROQUINE
  7. TRAZODONE [Concomitant]
     Active Substance: TRAZODONE HYDROCHLORIDE
  8. SERTRALINE [Concomitant]
     Active Substance: SERTRALINE HYDROCHLORIDE
  9. ALPRAZOLAM. [Concomitant]
     Active Substance: ALPRAZOLAM
  10. CYCLOBENZAPR [Concomitant]
     Active Substance: CYCLOBENZAPRINE
  11. BENLYSTA [Suspect]
     Active Substance: BELIMUMAB
     Indication: SYSTEMIC LUPUS ERYTHEMATOSUS
     Dosage: ?          OTHER FREQUENCY:EVERY WEEK;?
     Route: 058
     Dates: start: 20180124
  12. BUPROPIN [Concomitant]
     Active Substance: BUPROPION

REACTIONS (3)
  - Injury [None]
  - Product dose omission [None]
  - Fall [None]

NARRATIVE: CASE EVENT DATE: 20181005
